FAERS Safety Report 5885643-0 (Version None)
Quarter: 2008Q3

REPORT INFORMATION
  Report Type: 
  Country: None (occurrence: None)
  Receive Date: 20080912
  Receipt Date: 20080827
  Transmission Date: 20090109
  Serious: Yes (Hospitalization)
  Sender: FDA-Public Use
  Company Number: DSA_32377_2008

PATIENT
  Age: 82 Year
  Sex: Female

DRUGS (11)
  1. RENIVEZE (RENIVEZE - ENALAPRIL MALEATE) (NOT SPECIFIED) [Suspect]
     Indication: DRUG USE FOR UNKNOWN INDICATION
     Dosage: DF ORAL
     Route: 048
  2. SINGULAIR [Suspect]
     Indication: DRUG USE FOR UNKNOWN INDICATION
     Dosage: ORAL
  3. MUCODYNE (MUCODYNE - CARBOCISTEINE) (NOT SPECIFIED) [Suspect]
     Indication: DRUG USE FOR UNKNOWN INDICATION
     Dosage: DF ORAL
     Route: 048
  4. URSO /00465701/ (URSO - URSODESOXYCHOLIC ACID) (NOT SPECIFIED) [Suspect]
     Indication: DRUG USE FOR UNKNOWN INDICATION
     Dosage: DF ORAL
     Route: 048
  5. BAYASPIRIN (BAYASPIRIN - ASPIRIN) (NOT SPECIFIED) [Suspect]
     Indication: DRUG USE FOR UNKNOWN INDICATION
     Dosage: DF ORAL
     Route: 048
  6. UNIPHYL (UNIPHYL LA - THEOPHYLLINE) (NOT SPECIFIED) [Suspect]
     Indication: DRUG USE FOR UNKNOWN INDICATION
     Dosage: DF  ORAL
     Route: 048
  7. CLARITIN [Suspect]
     Indication: DRUG USE FOR UNKNOWN INDICATION
     Dosage: DF ORAL
     Route: 048
  8. AMLODIPINE BESYLATE [Suspect]
     Indication: DRUG USE FOR UNKNOWN INDICATION
     Dosage: DF ORAL
     Route: 048
  9. INTAL [Suspect]
     Indication: DRUG USE FOR UNKNOWN INDICATION
     Dosage: DF NASAL
     Route: 045
  10. PULMICORT [Suspect]
     Indication: DRUG USE FOR UNKNOWN INDICATION
     Dosage: DF ORAL
     Route: 048
  11. MOHRUS (MOHRUS - KETOPROFEN) (NOT SPECIFIED) [Suspect]
     Indication: DRUG USE FOR UNKNOWN INDICATION
     Dosage: DF TOPICAL
     Route: 061

REACTIONS (2)
  - ALLERGIC GRANULOMATOUS ANGIITIS [None]
  - LEUKOCYTOCLASTIC VASCULITIS [None]
